FAERS Safety Report 9631399 (Version 2)
Quarter: 2013Q4

REPORT INFORMATION
  Report Type: Spontaneous
  Country: FR (occurrence: FR)
  Receive Date: 20131018
  Receipt Date: 20131211
  Transmission Date: 20140711
  Serious: Yes (Other)
  Sender: FDA-Public Use
  Company Number: FR-JNJFOC-20131005580

PATIENT
  Age: 52 Year
  Sex: Female

DRUGS (11)
  1. HALDOL [Suspect]
     Indication: BIPOLAR DISORDER
     Dosage: ONE HALF OF TABLET
     Route: 048
     Dates: start: 20130916
  2. HALDOL [Suspect]
     Indication: BIPOLAR DISORDER
     Dosage: ONE HALF OF TABLET
     Route: 048
     Dates: start: 20131006
  3. HALDOL [Suspect]
     Indication: BIPOLAR DISORDER
     Dosage: 1/4 OF TABLET
     Route: 048
  4. HALDOL [Suspect]
     Indication: BIPOLAR DISORDER
     Route: 048
     Dates: start: 20131008, end: 20131026
  5. TEGRETOL LP [Suspect]
     Indication: BIPOLAR DISORDER
     Dosage: 1/4 OR 1/2 TWICE PER DAY
     Route: 048
     Dates: start: 20130916
  6. LEXOMIL [Concomitant]
     Dosage: 3/4 OF TABLET
     Route: 065
  7. INIPOMP [Concomitant]
     Indication: GASTROOESOPHAGEAL REFLUX DISEASE
     Route: 048
     Dates: start: 20130502
  8. KESTIN [Concomitant]
     Route: 065
  9. NASONEX [Concomitant]
     Indication: MULTIPLE ALLERGIES
     Route: 045
     Dates: start: 20130627
  10. EBASTIN [Concomitant]
     Indication: MULTIPLE ALLERGIES
     Route: 048
     Dates: start: 20130719
  11. LEPTICUR [Concomitant]
     Route: 048
     Dates: start: 20130830, end: 20130926

REACTIONS (10)
  - Suicidal ideation [Recovered/Resolved]
  - Confusional state [Unknown]
  - Wrong technique in drug usage process [Unknown]
  - Sleep disorder [Unknown]
  - Vision blurred [Unknown]
  - Salivary hypersecretion [Unknown]
  - Weight increased [Unknown]
  - Gait disturbance [Unknown]
  - Local swelling [Unknown]
  - Affective disorder [Unknown]
